FAERS Safety Report 8473824-1 (Version None)
Quarter: 2012Q2

REPORT INFORMATION
  Report Type: 
  Country: None (occurrence: None)
  Receive Date: 20120628
  Receipt Date: 20120208
  Transmission Date: 20120825
  Serious: Yes (Life-Threatening, Other)
  Sender: FDA-Public Use
  Company Number: US-MYLANLABS-2011S1025282

PATIENT
  Age: 54 Year
  Sex: Female
  Weight: 56.47 kg

DRUGS (4)
  1. CHLORPROMAZINE HCL [Concomitant]
  2. CLOZAPINE [Suspect]
     Indication: SCHIZOPHRENIA
     Route: 048
     Dates: start: 20111130, end: 20111223
  3. INVEGA [Concomitant]
  4. ZYPREXA [Concomitant]
     Dosage: DOSE ON 11/27/2011 AND 11/30/2011

REACTIONS (1)
  - GRANULOCYTOPENIA [None]
